FAERS Safety Report 4811728-3 (Version None)
Quarter: 2005Q4

REPORT INFORMATION
  Report Type: 
  Country: None (occurrence: None)
  Receive Date: 20051025
  Receipt Date: 20051012
  Transmission Date: 20060501
  Serious: Yes (Death)
  Sender: FDA-Public Use
  Company Number: 210176

PATIENT
  Age: 10 Year
  Sex: Female

DRUGS (8)
  1. RITUXAN [Suspect]
     Indication: PROPHYLAXIS AGAINST TRANSPLANT REJECTION
     Dosage: 380 MG, SINGLE, INTRAVENOUS
     Route: 042
     Dates: start: 20040127, end: 20040127
  2. MYCOPHENOLATE MOFETIL (MYCOPHENOLATE MOFETIL) [Suspect]
     Indication: IMMUNOSUPPRESSION
     Dosage: ORAL
     Route: 048
     Dates: start: 20040129, end: 20040514
  3. TACROLIMUS (TACROLIMUS) [Concomitant]
  4. METHYLPREDNISOLONE [Concomitant]
  5. STEROID (STEROID NOS) [Concomitant]
  6. BASILIXIMAB (BASILIXIMAB) [Concomitant]
  7. FOSCARNET (FOSCARNET SODIUM) [Concomitant]
  8. FRESH FROZEN PLASMA [Concomitant]

REACTIONS (8)
  - BLOOD ALBUMIN INCREASED [None]
  - BLOOD IMMUNOGLOBULIN M DECREASED [None]
  - CYTOMEGALOVIRUS INFECTION [None]
  - DRUG RESISTANCE [None]
  - HAEMOGLOBIN DECREASED [None]
  - LIVER TRANSPLANT REJECTION [None]
  - PLATELET COUNT INCREASED [None]
  - PNEUMOCYSTIS JIROVECI PNEUMONIA [None]
